FAERS Safety Report 23329240 (Version 2)
Quarter: 2023Q4

REPORT INFORMATION
  Report Type: Report from Study
  Country: US (occurrence: US)
  Receive Date: 20231222
  Receipt Date: 20231225
  Transmission Date: 20240109
  Serious: Yes (Other)
  Sender: FDA-Public Use
  Company Number: US-ABBVIE-5551383

PATIENT
  Sex: Female

DRUGS (2)
  1. RINVOQ [Suspect]
     Active Substance: UPADACITINIB
     Indication: Crohn^s disease
     Dosage: FORM STRENGTH: 45 MG
     Route: 048
     Dates: start: 20230420
  2. RINVOQ [Suspect]
     Active Substance: UPADACITINIB
     Indication: Crohn^s disease
     Dosage: FORM STRENGTH: 45 MG
     Route: 048
     Dates: start: 20230718

REACTIONS (13)
  - Pancreatectomy [Unknown]
  - Post procedural complication [Unknown]
  - Influenza [Unknown]
  - Erythema [Unknown]
  - Pustule [Unknown]
  - Bronchitis [Unknown]
  - Cholecystectomy [Unknown]
  - Appendicectomy [Unknown]
  - Respiratory tract infection [Recovered/Resolved]
  - Oropharyngeal pain [Recovered/Resolved]
  - Fungal infection [Recovered/Resolved]
  - Infection [Unknown]
  - Colectomy total [Unknown]

NARRATIVE: CASE EVENT DATE: 20230101
